FAERS Safety Report 15060174 (Version 1)
Quarter: 2018Q2

REPORT INFORMATION
  Report Type: Spontaneous
  Country: US (occurrence: US)
  Receive Date: 20180625
  Receipt Date: 20180625
  Transmission Date: 20180711
  Serious: No
  Sender: FDA-Public Use
  Company Number: US-SUNOVION-2018SUN002456

PATIENT
  Sex: Female
  Weight: 90.7 kg

DRUGS (1)
  1. LEVALBUTEROL TARTRATE. [Suspect]
     Active Substance: LEVALBUTEROL TARTRATE
     Indication: ASTHMA
     Dosage: 45 MCG TWO PUFFS TID
     Route: 055

REACTIONS (3)
  - Productive cough [Unknown]
  - Drug dose omission [Unknown]
  - Cough [Recovering/Resolving]
